FAERS Safety Report 8556097-0 (Version None)
Quarter: 2012Q3

REPORT INFORMATION
  Report Type: 
  Country: None (occurrence: None)
  Receive Date: 20120801
  Receipt Date: 20120723
  Transmission Date: 20120928
  Serious: Yes (Hospitalization)
  Sender: FDA-Public Use
  Company Number: CA-JNJFOC-20120712905

PATIENT
  Sex: Female
  Weight: 62 kg

DRUGS (9)
  1. ZOLAFREN [Concomitant]
     Route: 065
  2. TYLENOL (CAPLET) [Concomitant]
     Route: 065
  3. CORTIFOAM [Concomitant]
     Route: 065
  4. CEPTAZ [Concomitant]
     Route: 065
  5. DALTEPARIN SODIUM [Concomitant]
     Route: 065
  6. GRAVOL TAB [Concomitant]
     Route: 065
  7. INFLIXIMAB, RECOMBINANT [Suspect]
     Indication: COLITIS ULCERATIVE
     Route: 042
     Dates: start: 20120331
  8. AMOXICILLIN [Concomitant]
     Route: 065
  9. AMOXICILLIN AND CLAVULANATE POTASSIUM [Concomitant]
     Dosage: 1 TABLET
     Route: 065

REACTIONS (2)
  - RECTAL HAEMORRHAGE [None]
  - PYREXIA [None]
